FAERS Safety Report 12233656 (Version 1)
Quarter: 2016Q2

REPORT INFORMATION
  Report Type: Spontaneous
  Country: US (occurrence: US)
  Receive Date: 20160404
  Receipt Date: 20160404
  Transmission Date: 20160815
  Serious: Yes (Other)
  Sender: FDA-Public Use
  Company Number: US-AUROBINDO-AUR-APL-2016-04282

PATIENT
  Age: 37 Year
  Sex: Female

DRUGS (1)
  1. TOPIRAMATE 200MG [Suspect]
     Active Substance: TOPIRAMATE
     Indication: HEADACHE
     Dosage: 200 MG, DAILY
     Route: 065

REACTIONS (3)
  - Sjogren^s syndrome [Unknown]
  - Renal tubular acidosis [Unknown]
  - Condition aggravated [Unknown]
